FAERS Safety Report 21019245 (Version 1)
Quarter: 2022Q2

REPORT INFORMATION
  Report Type: Spontaneous
  Country: US (occurrence: US)
  Receive Date: 20220628
  Receipt Date: 20220628
  Transmission Date: 20220721
  Serious: No
  Sender: FDA-Public Use
  Company Number: US-SA-SAC20220621001611

PATIENT
  Age: 52 Year
  Sex: Female

DRUGS (2)
  1. AUBAGIO [Suspect]
     Active Substance: TERIFLUNOMIDE
     Indication: Multiple sclerosis
     Dosage: 14 MG, QD
     Route: 048
     Dates: start: 20180222
  2. ALLERGY [BUPLEURUM FALCATUM;GLYCYRRHIZA URALENSIS;PANAX GINSENG;PINELL [Concomitant]

REACTIONS (1)
  - Product use issue [Not Recovered/Not Resolved]
